FAERS Safety Report 4473404-9 (Version None)
Quarter: 2004Q4

REPORT INFORMATION
  Report Type: 
  Country: None (occurrence: None)
  Receive Date: 20040923
  Receipt Date: 20040602
  Transmission Date: 20050328
  Serious: Yes (Other)
  Sender: FDA-Public Use
  Company Number: PERC20040025

PATIENT
  Age: 55 Year
  Sex: Female

DRUGS (2)
  1. PERCOCET-5 [Suspect]
     Indication: PAIN
     Dosage: 2 DOSES PO
     Route: 048
     Dates: start: 20040526, end: 20040526
  2. ACETAMINOPHEN OR PLACEBO [Suspect]
     Dosage: IV
     Route: 042
     Dates: start: 20040526, end: 20040527

REACTIONS (3)
  - MEDICATION ERROR [None]
  - OVERDOSE [None]
  - VOMITING [None]
